FAERS Safety Report 21016233 (Version 1)
Quarter: 2022Q2

REPORT INFORMATION
  Report Type: Spontaneous
  Country: US (occurrence: None)
  Receive Date: 20220627
  Receipt Date: 20220627
  Transmission Date: 20220721
  Serious: Yes (Other)
  Sender: FDA-Public Use
  Company Number: None

PATIENT
  Age: 18 Year
  Sex: Female
  Weight: 84 kg

DRUGS (1)
  1. BEBTELOVIMAB [Suspect]
     Active Substance: BEBTELOVIMAB
     Indication: COVID-19
     Dosage: OTHER FREQUENCY : ONE TIME DOSE;?
     Route: 040
     Dates: start: 20220620, end: 20220620

REACTIONS (5)
  - Throat irritation [None]
  - Pharyngeal swelling [None]
  - Nausea [None]
  - Throat tightness [None]
  - Hypoaesthesia oral [None]

NARRATIVE: CASE EVENT DATE: 20220620
